FAERS Safety Report 25596259 (Version 2)
Quarter: 2025Q3

REPORT INFORMATION
  Report Type: Report from Study
  Country: PK (occurrence: PK)
  Receive Date: 20250723
  Receipt Date: 20250729
  Transmission Date: 20251021
  Serious: Yes (Death, Hospitalization, Other)
  Sender: MYLAN
  Company Number: PK-MYLANLABS-2025M1061385

PATIENT
  Age: 20 Year
  Sex: Female
  Weight: 24.5 kg

DRUGS (4)
  1. PRETOMANID [Suspect]
     Active Substance: PRETOMANID
     Indication: Pulmonary tuberculosis
     Dosage: 200 MILLIGRAM, QD (DAILY)
     Dates: start: 20250627
  2. BEDAQUILINE [Suspect]
     Active Substance: BEDAQUILINE
     Indication: Pulmonary tuberculosis
     Dosage: 400 MILLIGRAM, QD (DAILY)
     Dates: start: 20250627
  3. LINEZOLID [Suspect]
     Active Substance: LINEZOLID
     Indication: Pulmonary tuberculosis
     Dosage: 600 MILLIGRAM, QD (DAILY)
     Dates: start: 20250627
  4. PYRIDOXINE [Concomitant]
     Active Substance: PYRIDOXINE
     Indication: Neuropathy peripheral
     Dosage: 50 MILLIGRAM, QD (DAILY)
     Dates: start: 20250627

REACTIONS (5)
  - Death [Fatal]
  - Condition aggravated [Unknown]
  - Abdominal abscess [Unknown]
  - Abdominal pain [Unknown]
  - Blood alkaline phosphatase increased [Unknown]

NARRATIVE: CASE EVENT DATE: 20250627
